FAERS Safety Report 25777406 (Version 3)
Quarter: 2025Q4

REPORT INFORMATION
  Report Type: Spontaneous
  Country: JP (occurrence: JP)
  Receive Date: 20250909
  Receipt Date: 20251003
  Transmission Date: 20260118
  Serious: Yes (Hospitalization, Other)
  Sender: JOHNSON AND JOHNSON
  Company Number: JP-JNJFOC-20250909988

PATIENT
  Age: 77 Year
  Sex: Female
  Weight: 56.0 kg

DRUGS (12)
  1. RYBREVANT [Suspect]
     Active Substance: AMIVANTAMAB-VMJW
     Indication: EGFR gene mutation
     Dosage: DOSE UNKNOWN,1CYCLE
     Route: 041
     Dates: start: 20250804, end: 20250804
  2. RYBREVANT [Suspect]
     Active Substance: AMIVANTAMAB-VMJW
     Dosage: DOSE UNKNOWN
     Route: 041
     Dates: start: 20250805, end: 20250805
  3. RYBREVANT [Suspect]
     Active Substance: AMIVANTAMAB-VMJW
     Dosage: DOSE UNKNOWN
     Route: 041
     Dates: start: 20250812, end: 20250812
  4. RYBREVANT [Suspect]
     Active Substance: AMIVANTAMAB-VMJW
     Dosage: DOSE UNKNOWN
     Route: 041
     Dates: start: 20250819, end: 20250819
  5. RYBREVANT [Suspect]
     Active Substance: AMIVANTAMAB-VMJW
     Dosage: DOSE UNKNOWN
     Route: 041
     Dates: start: 20250908, end: 20250908
  6. RYBREVANT [Suspect]
     Active Substance: AMIVANTAMAB-VMJW
     Dosage: DOSE UNKNOWN
     Route: 041
     Dates: start: 20250922, end: 20250922
  7. LAZCLUZE [Suspect]
     Active Substance: LAZERTINIB
     Indication: EGFR gene mutation
     Route: 048
     Dates: start: 20250804, end: 20250804
  8. LAZCLUZE [Suspect]
     Active Substance: LAZERTINIB
     Route: 048
     Dates: start: 20250805, end: 20250805
  9. LAZCLUZE [Suspect]
     Active Substance: LAZERTINIB
     Route: 048
     Dates: start: 20250812, end: 20250812
  10. LAZCLUZE [Suspect]
     Active Substance: LAZERTINIB
     Route: 048
     Dates: start: 20250819, end: 20250819
  11. LAZCLUZE [Suspect]
     Active Substance: LAZERTINIB
     Route: 048
     Dates: start: 20250904, end: 20250904
  12. LAZCLUZE [Suspect]
     Active Substance: LAZERTINIB
     Route: 048
     Dates: start: 20250922, end: 20250922

REACTIONS (2)
  - Hepatic function abnormal [Unknown]
  - Hypoalbuminaemia [Recovering/Resolving]

NARRATIVE: CASE EVENT DATE: 20250101
